FAERS Safety Report 5060746-1 (Version None)
Quarter: 2006Q3

REPORT INFORMATION
  Report Type: 
  Country: None (occurrence: None)
  Receive Date: 20060725
  Receipt Date: 20060719
  Transmission Date: 20061208
  Serious: Yes (Hospitalization)
  Sender: FDA-Public Use
  Company Number: US-JNJFOC-20060704543

PATIENT
  Sex: Female
  Weight: 68.04 kg

DRUGS (1)
  1. DITROPAN XL [Suspect]
     Indication: HYPERTONIC BLADDER
     Route: 048

REACTIONS (2)
  - DRY MOUTH [None]
  - PNEUMONIA [None]
